FAERS Safety Report 7321426-2 (Version None)
Quarter: 2011Q1

REPORT INFORMATION
  Report Type: 
  Country: None (occurrence: None)
  Receive Date: 20110228
  Receipt Date: 20100507
  Transmission Date: 20110831
  Serious: No
  Sender: FDA-Public Use
  Company Number: US-PFIZER INC-2010058124

PATIENT
  Age: 19 Year
  Sex: Male
  Weight: 77.098 kg

DRUGS (1)
  1. GEODON [Suspect]
     Dosage: 160 MG, UNK
     Dates: end: 20100201

REACTIONS (4)
  - SEXUAL DYSFUNCTION [None]
  - EJACULATION FAILURE [None]
  - TOBACCO USER [None]
  - ERECTILE DYSFUNCTION [None]
